FAERS Safety Report 8759489 (Version 1)
Quarter: 2012Q4

REPORT INFORMATION
  Report Type: 
  Country: US (occurrence: US)
  Receive Date: 20120829
  Receipt Date: 20120829
  Transmission Date: 20130627
  Serious: No
  Sender: FDA-Public Use
  Company Number: US-MERCK-1207USA00120

PATIENT

DRUGS (2)
  1. EMEND [Suspect]
     Indication: PROPHYLAXIS OF NAUSEA AND VOMITING
     Dosage: 125 mg, UNK
     Route: 048
     Dates: start: 20120531, end: 20120531
  2. EMEND [Suspect]
     Dosage: 80 mg, UNK
     Route: 048
     Dates: start: 20120601

REACTIONS (1)
  - Gastrointestinal tube insertion [Not Recovered/Not Resolved]
